FAERS Safety Report 25263019 (Version 4)
Quarter: 2025Q4

REPORT INFORMATION
  Report Type: Spontaneous
  Country: CA (occurrence: CA)
  Receive Date: 20250502
  Receipt Date: 20251021
  Transmission Date: 20260119
  Serious: Yes (Hospitalization, Other)
  Sender: CELLTRION
  Company Number: CA-PFIZER INC-202500048645

PATIENT

DRUGS (4)
  1. INFLIXIMAB [Suspect]
     Active Substance: INFLIXIMAB
     Indication: Psoriatic arthropathy
     Dosage: 400 MG
     Route: 042
  2. INFLIXIMAB [Suspect]
     Active Substance: INFLIXIMAB
     Dosage: 3 MG/KG
     Route: 042
  3. INFLECTRA [Suspect]
     Active Substance: INFLIXIMAB-DYYB
     Indication: Psoriatic arthropathy
     Dosage: 3 MG/KG W 0,2, 6  AND THEN EVERY 8 WEEKS
     Route: 042
     Dates: start: 20230624
  4. INFLECTRA [Suspect]
     Active Substance: INFLIXIMAB-DYYB
     Dosage: 400 MG AFTER 8 WEEKS AND 2 DAYS (PRESCRIBED EVERY 8 WEEKS)
     Route: 042
     Dates: start: 20250227

REACTIONS (7)
  - Loss of consciousness [Recovered/Resolved]
  - Condition aggravated [Recovered/Resolved]
  - Confusional state [Recovered/Resolved]
  - Diabetes mellitus [Unknown]
  - Headache [Recovered/Resolved]
  - Intentional product use issue [Unknown]
  - Overdose [Unknown]

NARRATIVE: CASE EVENT DATE: 20250227
